FAERS Safety Report 11319122 (Version 1)
Quarter: 2015Q3

REPORT INFORMATION
  Report Type: Spontaneous
  Country: US (occurrence: None)
  Receive Date: 20150727
  Receipt Date: 20150727
  Transmission Date: 20151125
  Serious: Yes (Disabling)
  Sender: FDA-Public Use
  Company Number: None

PATIENT
  Age: 29 Year
  Sex: Female
  Weight: 92.99 kg

DRUGS (10)
  1. NECON [Concomitant]
     Active Substance: ETHINYL ESTRADIOL\NORETHINDRONE
  2. PROBIOTIC [Concomitant]
     Active Substance: PROBIOTICS NOS
  3. ALLEGRA [Concomitant]
     Active Substance: FEXOFENADINE HYDROCHLORIDE
  4. ZYRTEC [Concomitant]
     Active Substance: CETIRIZINE HYDROCHLORIDE
  5. FIBER CHEWY [Concomitant]
  6. GABAPENTIN. [Suspect]
     Active Substance: GABAPENTIN
     Indication: PAIN
     Dosage: 2 PILLS TWICE A DAY TWICE DAILY TAKEN BY MOUTH
     Route: 048
     Dates: start: 20131227, end: 20150122
  7. VITA FUSION WOMEN^S VITAMIN [Concomitant]
  8. PROBIOTIC [Concomitant]
     Active Substance: PROBIOTICS NOS
  9. MELOXICAM. [Suspect]
     Active Substance: MELOXICAM
     Indication: PAIN
     Dosage: MELOXICAM 15MG ONCE DAILY TAKEN BY MOUTH
     Route: 048
     Dates: start: 20131227, end: 20150122
  10. PLAQUENIL [Concomitant]
     Active Substance: HYDROXYCHLOROQUINE SULFATE

REACTIONS (1)
  - Urticaria [None]

NARRATIVE: CASE EVENT DATE: 20150122
